FAERS Safety Report 20782231 (Version 4)
Quarter: 2022Q4

REPORT INFORMATION
  Report Type: Spontaneous
  Country: US (occurrence: US)
  Receive Date: 20220504
  Receipt Date: 20221005
  Transmission Date: 20230112
  Serious: No
  Sender: FDA-Public Use
  Company Number: US-BEH-2022144740

PATIENT
  Sex: Female

DRUGS (44)
  1. PRIVIGEN [Suspect]
     Active Substance: HUMAN IMMUNOGLOBULIN G
     Indication: White blood cell disorder
     Dosage: 55 GRAM, Q3W
     Route: 042
     Dates: start: 20210319
  2. PRIVIGEN [Suspect]
     Active Substance: HUMAN IMMUNOGLOBULIN G
     Indication: Hypergammaglobulinaemia
     Dosage: UNK
     Route: 042
     Dates: start: 20220420
  3. PRIVIGEN [Suspect]
     Active Substance: HUMAN IMMUNOGLOBULIN G
     Dosage: UNK
     Route: 042
     Dates: start: 20220712
  4. PRIVIGEN [Suspect]
     Active Substance: HUMAN IMMUNOGLOBULIN G
     Dosage: 55 GRAM, Q3W
     Route: 042
     Dates: start: 20211116, end: 202209
  5. ACETAMINOPHEN [Concomitant]
     Active Substance: ACETAMINOPHEN
  6. ACETAMINOPHEN [Concomitant]
     Active Substance: ACETAMINOPHEN
  7. ACYCLOVIR [Concomitant]
     Active Substance: ACYCLOVIR
  8. ALPRAZOLAM [Concomitant]
     Active Substance: ALPRAZOLAM
  9. BUDESONIDE [Concomitant]
     Active Substance: BUDESONIDE
  10. BUPROPION [Concomitant]
     Active Substance: BUPROPION
  11. BUSPIRONE [Concomitant]
     Active Substance: BUSPIRONE HYDROCHLORIDE
  12. CYCLOBENZAPRINE HYDROCHLORIDE [Concomitant]
     Active Substance: CYCLOBENZAPRINE HYDROCHLORIDE
  13. DIAZEPAM [Concomitant]
     Active Substance: DIAZEPAM
  14. DIPHENHYDRAMINE HYDROCHLORIDE [Concomitant]
     Active Substance: DIPHENHYDRAMINE HYDROCHLORIDE
  15. EPINEPHRINE [Concomitant]
     Active Substance: EPINEPHRINE
  16. ESTRADIOL [Concomitant]
     Active Substance: ESTRADIOL
  17. FLUCONAZOLE [Concomitant]
     Active Substance: FLUCONAZOLE
  18. GABAPENTIN [Concomitant]
     Active Substance: GABAPENTIN
  19. HOMATROPINE METHYLBROMIDE\HYDROCODONE BITARTRATE [Concomitant]
     Active Substance: HOMATROPINE METHYLBROMIDE\HYDROCODONE BITARTRATE
  20. HYDROCORTISONE ACETATE [Concomitant]
     Active Substance: HYDROCORTISONE ACETATE
  21. HYDROMORPHONE [Concomitant]
     Active Substance: HYDROMORPHONE
  22. HYDROXYZINE HYDROCHLORIDE [Concomitant]
     Active Substance: HYDROXYZINE HYDROCHLORIDE
  23. LIDOCAINE HYDROCHLORIDE [Concomitant]
     Active Substance: LIDOCAINE HYDROCHLORIDE
  24. MONTELUKAST SODIUM [Concomitant]
     Active Substance: MONTELUKAST SODIUM
  25. SODIUM CHLORIDE [Concomitant]
     Active Substance: SODIUM CHLORIDE
  26. ONDANSETRON [Concomitant]
     Active Substance: ONDANSETRON
  27. PREGABALIN [Concomitant]
     Active Substance: PREGABALIN
  28. PREGABALIN [Concomitant]
     Active Substance: PREGABALIN
  29. TRAMADOL HCL [Concomitant]
     Active Substance: TRAMADOL HYDROCHLORIDE
  30. VALACYCLOVIR [Concomitant]
     Active Substance: VALACYCLOVIR HYDROCHLORIDE
  31. VALACYCLOVIR [Concomitant]
     Active Substance: VALACYCLOVIR HYDROCHLORIDE
  32. PROMETHAZINE [Concomitant]
     Active Substance: PROMETHAZINE HYDROCHLORIDE
  33. PREGABALIN AL [Concomitant]
  34. PREDNISONE [Concomitant]
     Active Substance: PREDNISONE
  35. PHENTERMINE [Concomitant]
     Active Substance: PHENTERMINE
  36. PAROXETINE [Concomitant]
     Active Substance: PAROXETINE
  37. MONTELUKAST [Concomitant]
     Active Substance: MONTELUKAST SODIUM
  38. LIDOCAINE [Concomitant]
     Active Substance: LIDOCAINE
  39. ALBUTEROL\IPRATROPIUM [Concomitant]
     Active Substance: ALBUTEROL\IPRATROPIUM
  40. DIPHENHYDRAMINE [Concomitant]
     Active Substance: DIPHENHYDRAMINE
  41. BREO ELLIPTA [Concomitant]
     Active Substance: FLUTICASONE FUROATE\VILANTEROL TRIFENATATE
  42. AZITHROMYCIN [Concomitant]
     Active Substance: AZITHROMYCIN
  43. ALBUTEROL SULFATE [Concomitant]
     Active Substance: ALBUTEROL SULFATE
  44. TRIAMCINOLON [TRIAMCINOLONE ACETONIDE] [Concomitant]
     Dosage: 0.1 PERCENT

REACTIONS (5)
  - Illness [Recovered/Resolved]
  - Therapy interrupted [Recovered/Resolved]
  - Illness [Not Recovered/Not Resolved]
  - Therapy interrupted [Not Recovered/Not Resolved]
  - Arthralgia [Not Recovered/Not Resolved]
